FAERS Safety Report 12173482 (Version 4)
Quarter: 2016Q1

REPORT INFORMATION
  Report Type: Spontaneous
  Country: US (occurrence: US)
  Receive Date: 20160311
  Receipt Date: 20160317
  Transmission Date: 20160526
  Serious: No
  Sender: FDA-Public Use
  Company Number: US-GALDERMA-US15002976

PATIENT
  Sex: Female

DRUGS (2)
  1. TRI-LUMA [Suspect]
     Active Substance: FLUOCINOLONE ACETONIDE\HYDROQUINONE\TRETINOIN
     Route: 061
     Dates: end: 2000
  2. TRI-LUMA [Suspect]
     Active Substance: FLUOCINOLONE ACETONIDE\HYDROQUINONE\TRETINOIN
     Indication: PIGMENTATION DISORDER
     Route: 061
     Dates: start: 201503

REACTIONS (6)
  - Skin injury [Recovering/Resolving]
  - Hypersensitivity [Recovering/Resolving]
  - Emotional distress [Recovering/Resolving]
  - Condition aggravated [Recovering/Resolving]
  - Erythema [Recovering/Resolving]
  - Skin burning sensation [Recovered/Resolved]

NARRATIVE: CASE EVENT DATE: 201503
